FAERS Safety Report 18270273 (Version 1)
Quarter: 2020Q3

REPORT INFORMATION
  Report Type: Spontaneous
  Country: DE (occurrence: DE)
  Receive Date: 20200916
  Receipt Date: 20200916
  Transmission Date: 20201103
  Serious: Yes (Other)
  Sender: FDA-Public Use
  Company Number: DE-B.I. PHARMACEUTICALS,INC./RIDGEFIELD-2020-BI-045714

PATIENT
  Age: 68 Year
  Sex: Male

DRUGS (1)
  1. GILOTRIF [Suspect]
     Active Substance: AFATINIB
     Indication: LUNG ADENOCARCINOMA
     Dates: start: 201709

REACTIONS (10)
  - Pleural effusion [Unknown]
  - Metastatic neoplasm [Unknown]
  - Metastases to central nervous system [Unknown]
  - Cough [Unknown]
  - Malignant neoplasm progression [Unknown]
  - Lymphadenopathy [Unknown]
  - Gene mutation [Unknown]
  - Pleural effusion [Unknown]
  - Lung infiltration [Unknown]
  - Lymphangiosis carcinomatosa [Unknown]

NARRATIVE: CASE EVENT DATE: 201802
